FAERS Safety Report 5342756-X (Version None)
Quarter: 2007Q2

REPORT INFORMATION
  Report Type: 
  Country: None (occurrence: None)
  Receive Date: 20070601
  Receipt Date: 20070524
  Transmission Date: 20071010
  Serious: Yes (Disabling)
  Sender: FDA-Public Use
  Company Number: DE-ABBOTT-07P-062-0369504-00

PATIENT
  Sex: Male

DRUGS (1)
  1. ERGENYL CHRONOSPHERE SACHET [Suspect]
     Indication: EPILEPSY
     Route: 048
     Dates: start: 20070315

REACTIONS (4)
  - ANAL INJURY [None]
  - DIARRHOEA [None]
  - MEDICATION RESIDUE [None]
  - PROCTALGIA [None]
